FAERS Safety Report 23371204 (Version 1)
Quarter: 2024Q1

REPORT INFORMATION
  Report Type: Spontaneous
  Country: US (occurrence: US)
  Receive Date: 20240105
  Receipt Date: 20240105
  Transmission Date: 20240410
  Serious: Yes (Hospitalization)
  Sender: FDA-Public Use
  Company Number: US-BOIRON-202300403

PATIENT
  Sex: Female

DRUGS (13)
  1. ARNICARE [Suspect]
     Active Substance: HOMEOPATHICS
     Indication: Contusion
     Dosage: 3 TIMES DAILY
     Route: 061
     Dates: start: 202309, end: 2023
  2. ARNICARE [Suspect]
     Active Substance: HOMEOPATHICS
     Dosage: EVERY OTHER DAY
     Route: 061
     Dates: start: 2023, end: 20231129
  3. ARNICARE [Suspect]
     Active Substance: HOMEOPATHICS
     Indication: Contusion
     Dosage: UNK
     Route: 061
  4. IRBESARTAN AND HYDROCHLOROTHIAZIDE [Concomitant]
     Active Substance: HYDROCHLOROTHIAZIDE\IRBESARTAN
     Dosage: 300/12.5MG, 1X/DAY, IN THE MORNING
  5. ADVAIR HFA [Concomitant]
     Active Substance: FLUTICASONE PROPIONATE\SALMETEROL XINAFOATE
     Dosage: 1 PUFF, 2X/DAY
  6. ALBUTEROL SULFATE [Concomitant]
     Active Substance: ALBUTEROL SULFATE
     Dosage: UNK, AS NEEDED
  7. CALCIUM [Concomitant]
     Active Substance: CALCIUM
     Dosage: 500 MG, 2X/DAY
  8. VITAMIN D3 [Concomitant]
     Active Substance: CHOLECALCIFEROL
     Dosage: 1000 MG, 1X/DAY
  9. PYRIDOXINE HYDROCHLORIDE [Concomitant]
     Active Substance: PYRIDOXINE HYDROCHLORIDE
     Dosage: UNK, 1X/DAY
  10. DOCUSATE SODIUM [Concomitant]
     Active Substance: DOCUSATE SODIUM
     Dosage: UNK, 2X/DAY
  11. TYLENOL [Concomitant]
     Active Substance: ACETAMINOPHEN
     Dosage: 1000 MG, 2X/DAY
  12. MONTELUKAST [Concomitant]
     Active Substance: MONTELUKAST SODIUM
     Dosage: 10 MG, 1X/DAY, AT NIGHT
  13. METAMUCIL THERAPY FOR REGULARITY [Concomitant]
     Active Substance: PSYLLIUM HUSK
     Dosage: UNK, 1X/DAY

REACTIONS (4)
  - Blood pressure systolic increased [Recovered/Resolved]
  - Blood pressure fluctuation [Recovered/Resolved]
  - Palpitations [Recovered/Resolved]
  - Heart rate irregular [Recovered/Resolved]

NARRATIVE: CASE EVENT DATE: 20230101
